FAERS Safety Report 8460431-X (Version None)
Quarter: 2012Q2

REPORT INFORMATION
  Report Type: 
  Country: None (occurrence: None)
  Receive Date: 20120622
  Receipt Date: 20120612
  Transmission Date: 20120825
  Serious: Yes (Hospitalization, Other)
  Sender: FDA-Public Use
  Company Number: US-ABBOTT-12P-163-0945795-00

PATIENT
  Sex: Male
  Weight: 133.48 kg

DRUGS (6)
  1. LISINOPRIL [Concomitant]
     Indication: HYPERTENSION
     Dosage: DAILY
  2. HUMIRA [Suspect]
     Indication: PSORIATIC ARTHROPATHY
     Dates: start: 20080501
  3. FISH OIL [Concomitant]
     Indication: NEUROPATHY PERIPHERAL
     Dosage: DAILY
  4. ALLOPURINOL [Concomitant]
     Indication: GOUT
     Dosage: DAILY
  5. VITAMIN D [Concomitant]
     Indication: VITAMIN D DECREASED
     Dosage: 2 1000 UNITS
  6. SIMVASTATIN [Concomitant]
     Indication: BLOOD CHOLESTEROL INCREASED
     Dosage: DAILY

REACTIONS (6)
  - SCAR [None]
  - THROMBOSIS [None]
  - ATRIAL FIBRILLATION [None]
  - LIMB INJURY [None]
  - EXOSTOSIS [None]
  - SLEEP APNOEA SYNDROME [None]
